FAERS Safety Report 10945598 (Version 3)
Quarter: 2016Q2

REPORT INFORMATION
  Report Type: Spontaneous
  Country: US (occurrence: US)
  Receive Date: 20150323
  Receipt Date: 20160404
  Transmission Date: 20160815
  Serious: No
  Sender: FDA-Public Use
  Company Number: US-EMD SERONO-8016490

PATIENT
  Age: 37 Year
  Sex: Female

DRUGS (1)
  1. CETROTIDE [Suspect]
     Active Substance: CETRORELIX ACETATE
     Indication: INFERTILITY

REACTIONS (1)
  - Premature ovulation [Unknown]
